FAERS Safety Report 5126100-9 (Version None)
Quarter: 2006Q4

REPORT INFORMATION
  Report Type: 
  Country: None (occurrence: None)
  Receive Date: 20061010
  Receipt Date: 20061010
  Transmission Date: 20070319
  Serious: Yes (Hospitalization)
  Sender: FDA-Public Use
  Company Number: None

PATIENT
  Sex: Male
  Weight: 104.1 kg

DRUGS (1)
  1. TAXOTERE [Suspect]
     Dosage: 165 MG

REACTIONS (23)
  - ABDOMINAL DISCOMFORT [None]
  - BLOOD CREATINE PHOSPHOKINASE MB INCREASED [None]
  - BLOOD GLUCOSE INCREASED [None]
  - BLOOD UREA INCREASED [None]
  - BUNDLE BRANCH BLOCK RIGHT [None]
  - CARBON DIOXIDE DECREASED [None]
  - CARDIAC DISORDER [None]
  - CREATINE PHOSPHOKINASE DECREASED [None]
  - ELECTROCARDIOGRAM QRS COMPLEX SHORTENED [None]
  - ELECTROCARDIOGRAM T WAVE BIPHASIC [None]
  - FIBRIN D DIMER INCREASED [None]
  - GASTROINTESTINAL HAEMORRHAGE [None]
  - HAEMATOCRIT DECREASED [None]
  - HAEMOGLOBIN DECREASED [None]
  - HYPOTENSION [None]
  - LYMPHOCYTE COUNT DECREASED [None]
  - NEUTROPHIL PERCENTAGE INCREASED [None]
  - PULMONARY EMBOLISM [None]
  - RED BLOOD CELL COUNT DECREASED [None]
  - SINUS ARRHYTHMIA [None]
  - SYNCOPE [None]
  - TROPONIN I INCREASED [None]
  - WHITE BLOOD CELL COUNT INCREASED [None]
